FAERS Safety Report 16111955 (Version 2)
Quarter: 2019Q2

REPORT INFORMATION
  Report Type: Report from Study
  Country: FR (occurrence: FR)
  Receive Date: 20190325
  Receipt Date: 20190501
  Transmission Date: 20190711
  Serious: Yes (Other)
  Sender: FDA-Public Use
  Company Number: FR-CELGENEUS-FRA-20190305676

PATIENT
  Age: 87 Year
  Sex: Female
  Weight: 53 kg

DRUGS (8)
  1. RITUXIMAB. [Suspect]
     Active Substance: RITUXIMAB
     Indication: DIFFUSE LARGE B-CELL LYMPHOMA
     Dosage: 1400 MILLIGRAM
     Route: 058
     Dates: start: 20150630, end: 20150908
  2. VINCRISTINE [Suspect]
     Active Substance: VINCRISTINE
     Indication: DIFFUSE LARGE B-CELL LYMPHOMA
     Dosage: DOSE NOT PROVIDED
     Route: 065
     Dates: start: 20150609, end: 20150908
  3. REVLIMID [Suspect]
     Active Substance: LENALIDOMIDE
     Indication: DIFFUSE LARGE B-CELL LYMPHOMA
     Dosage: 10 MILLIGRAM
     Route: 048
     Dates: start: 20150609, end: 20150921
  4. PREDNISOLONE. [Suspect]
     Active Substance: PREDNISOLONE
     Indication: DIFFUSE LARGE B-CELL LYMPHOMA
     Dosage: DOSE NOT PROVIDED
     Route: 065
     Dates: start: 20150609, end: 20150908
  5. AMLOR [Concomitant]
     Active Substance: AMLODIPINE BESYLATE
     Indication: HYPERTENSION
     Route: 065
  6. CYCLOPHOSPHAMIDE. [Suspect]
     Active Substance: CYCLOPHOSPHAMIDE
     Indication: DIFFUSE LARGE B-CELL LYMPHOMA
     Dosage: DOSE NOT PROVIDED
     Route: 065
     Dates: start: 20150609, end: 20150908
  7. RITUXIMAB. [Suspect]
     Active Substance: RITUXIMAB
     Dosage: 582 MILLIGRAM
     Route: 041
     Dates: start: 20150609, end: 20150609
  8. DOXORUBICINE [Suspect]
     Active Substance: DOXORUBICIN
     Indication: DIFFUSE LARGE B-CELL LYMPHOMA
     Dosage: DOSE NOT PROVIDED
     Route: 065
     Dates: start: 20150609, end: 20150908

REACTIONS (1)
  - Myeloproliferative neoplasm [Not Recovered/Not Resolved]

NARRATIVE: CASE EVENT DATE: 20170824
